FAERS Safety Report 12544976 (Version 5)
Quarter: 2018Q1

REPORT INFORMATION
  Report Type: Spontaneous
  Country: IT (occurrence: IT)
  Receive Date: 20160711
  Receipt Date: 20180312
  Transmission Date: 20180508
  Serious: Yes (Death, Hospitalization, Other)
  Sender: FDA-Public Use
  Company Number: IT-WEST-WARD PHARMACEUTICALS CORP.-IT-H14001-16-01177

PATIENT
  Age: 82 Year
  Sex: Female

DRUGS (17)
  1. VANCOMYCIN [Suspect]
     Active Substance: VANCOMYCIN
     Indication: STAPHYLOCOCCAL INFECTION
     Dosage: BY A SWAB APPLIED TO A LEFT FOOT ULCER POSITIVE FOR STAPHYLOCOCCUS AUREUS
     Route: 042
     Dates: start: 20150521, end: 20150521
  2. DUROGESIC [Suspect]
     Active Substance: FENTANYL
     Indication: PAIN
     Route: 062
     Dates: start: 20150528, end: 20150602
  3. DUROGESIC [Suspect]
     Active Substance: FENTANYL
     Indication: PROCEDURAL PAIN
  4. FENTANYL. [Suspect]
     Active Substance: FENTANYL
     Indication: PAIN IN EXTREMITY
     Route: 048
     Dates: start: 20150101
  5. RIFAMPICIN [Suspect]
     Active Substance: RIFAMPIN
     Indication: STAPHYLOCOCCAL INFECTION
     Route: 042
     Dates: start: 20150521
  6. DUROGESIC [Suspect]
     Active Substance: FENTANYL
     Indication: PROCEDURAL PAIN
     Route: 062
     Dates: start: 20150521, end: 20150602
  7. FENTANYL. [Suspect]
     Active Substance: FENTANYL
     Route: 065
     Dates: start: 20150521
  8. LEVOFLOXACIN. [Suspect]
     Active Substance: LEVOFLOXACIN
     Indication: STAPHYLOCOCCAL INFECTION
     Route: 048
     Dates: start: 20150521, end: 20150521
  9. FENTANYL. [Suspect]
     Active Substance: FENTANYL
     Indication: ANGIOPATHY
     Route: 048
     Dates: start: 20150602, end: 20150602
  10. VANCOMYCIN [Suspect]
     Active Substance: VANCOMYCIN
     Route: 065
     Dates: start: 20150501
  11. FENTANYL. [Suspect]
     Active Substance: FENTANYL
     Indication: PROCEDURAL PAIN
     Route: 062
     Dates: start: 20150528, end: 20150602
  12. LEVOFLOXACIN. [Suspect]
     Active Substance: LEVOFLOXACIN
     Indication: STAPHYLOCOCCAL SKIN INFECTION
     Route: 048
     Dates: start: 20150522
  13. VANCOMYCIN [Suspect]
     Active Substance: VANCOMYCIN
     Route: 042
     Dates: start: 20150522
  14. VANCOMYCIN [Suspect]
     Active Substance: VANCOMYCIN
     Route: 061
  15. FENTANYL. [Suspect]
     Active Substance: FENTANYL
     Indication: ISCHAEMIC LIMB PAIN
     Route: 062
     Dates: start: 20150521, end: 20150528
  16. VANCOMYCIN [Suspect]
     Active Substance: VANCOMYCIN
     Indication: STAPHYLOCOCCAL INFECTION
     Dosage: BY A SWAB APPLIED TO A LEFT FOOT ULCER POSITIVE FOR STAPHYLOCOCCUS AUREUS
     Route: 061
     Dates: start: 20150101
  17. DUROGESIC [Suspect]
     Active Substance: FENTANYL
     Indication: PROCEDURAL PAIN
     Route: 062
     Dates: start: 20150521, end: 20150528

REACTIONS (14)
  - Status epilepticus [Recovered/Resolved]
  - Toxicity to various agents [Unknown]
  - Pyrexia [Fatal]
  - Sepsis [Fatal]
  - Prescribed overdose [Fatal]
  - Hallucination [Recovered/Resolved]
  - Tremor [Recovered/Resolved]
  - Somnolence [Recovered/Resolved]
  - Sopor [Recovered/Resolved]
  - Miosis [Recovered/Resolved]
  - Generalised non-convulsive epilepsy [Fatal]
  - Drug interaction [Recovering/Resolving]
  - Altered state of consciousness [Recovered/Resolved]
  - Depressed level of consciousness [Recovering/Resolving]

NARRATIVE: CASE EVENT DATE: 201506
